FAERS Safety Report 5762492-5 (Version None)
Quarter: 2008Q2

REPORT INFORMATION
  Report Type: 
  Country: None (occurrence: None)
  Receive Date: 20080609
  Receipt Date: 20080604
  Transmission Date: 20081010
  Serious: Yes (Hospitalization)
  Sender: FDA-Public Use
  Company Number: DE-BAYER-200817640GPV

PATIENT
  Age: 58 Year
  Sex: Female
  Weight: 72 kg

DRUGS (8)
  1. AVELOX [Suspect]
     Indication: SINUSITIS
     Route: 065
     Dates: start: 20080401, end: 20080403
  2. ASPIRIN [Concomitant]
     Indication: DRUG USE FOR UNKNOWN INDICATION
     Route: 065
  3. DELIX [Concomitant]
     Indication: DRUG USE FOR UNKNOWN INDICATION
     Route: 065
  4. L-THYROXINE 50 [Concomitant]
     Indication: DRUG USE FOR UNKNOWN INDICATION
     Route: 065
  5. METOPROLOL SUCCINATE [Concomitant]
     Indication: DRUG USE FOR UNKNOWN INDICATION
     Route: 065
  6. CEFACLOR [Concomitant]
     Indication: SINUSITIS
     Route: 065
     Dates: start: 20080325, end: 20080331
  7. ACETYLCYSTEINE [Concomitant]
     Indication: SINUSITIS
     Route: 065
     Dates: start: 20080325
  8. ACETAMINOPHEN [Concomitant]
     Indication: SINUSITIS
     Route: 065
     Dates: start: 20080325

REACTIONS (7)
  - ABDOMINAL DISCOMFORT [None]
  - BILE DUCT STENOSIS [None]
  - DIARRHOEA [None]
  - LIVER FUNCTION TEST ABNORMAL [None]
  - NAUSEA [None]
  - PANCREATITIS [None]
  - VOMITING [None]
